FAERS Safety Report 8051890-5 (Version None)
Quarter: 2012Q1

REPORT INFORMATION
  Report Type: 
  Country: None (occurrence: None)
  Receive Date: 20120111
  Receipt Date: 20111230
  Transmission Date: 20120608
  Serious: Yes (Hospitalization)
  Sender: FDA-Public Use
  Company Number: 1000024967

PATIENT
  Age: 78 Year
  Sex: Male

DRUGS (8)
  1. CITALOPRAM HYDROBROMIDE [Suspect]
     Dosage: 0.5 DOSAGE FORM (0.5 DOSAGE FORMS, 1 IN 1 D), ORAL
     Route: 048
  2. PREVISCAN (FLUINDIONE) (20 MILLIGRAM, TABLETS) [Suspect]
     Indication: ATRIAL FIBRILLATION
     Dosage: 0.625 DOSAGE FROM (1.25 DOSAGE FORMS, 1 IN 2 D), ORAL
     Route: 048
     Dates: end: 20110903
  3. ARICEPT [Suspect]
     Indication: DEMENTIA ALZHEIMER'S TYPE
     Dosage: 1 DOSAGE FORM (1 DOSAGE FORMS, 1 IN 1 D), ORAL
     Route: 048
  4. ODRIK (TRANDOLOPRIL) (TABLETS) (TRANDOLAPRIL) [Concomitant]
  5. DENSICAL D3 (CHOLECALCIFERL, CALCIUM CARBONATE) (500 MILLIGRAM, TABLET [Concomitant]
  6. ACTONEL [Suspect]
     Dosage: 1 DOSAGE FORM (1 DOSAGE FORMS, 1 IN 1 D), ORAL
     Route: 048
  7. BI TILDIEM (DILTIAZEM HYDROCHLORIDE) (90 MILLIGRAM, TABLETS) (DILTIAZE [Concomitant]
  8. TAHOR (ATORVASTATIN CALCIUM) (10 MILLIGRAM TABLETS) (ATORVASTATIN CALC [Concomitant]

REACTIONS (25)
  - HYPOTENSION [None]
  - MALAISE [None]
  - AORTIC ARTERIOSCLEROSIS [None]
  - CAROTID ARTERIOSCLEROSIS [None]
  - ARRHYTHMIA [None]
  - ANAEMIA [None]
  - DUODENAL ULCER [None]
  - AORTIC VALVE DISEASE [None]
  - INTERNATIONAL NORMALISED RATIO INCREASED [None]
  - TACHYCARDIA [None]
  - CONFUSIONAL STATE [None]
  - MEMORY IMPAIRMENT [None]
  - ATRIAL FIBRILLATION [None]
  - VERTEBRAL ARTERY STENOSIS [None]
  - VOMITING [None]
  - DILATATION ATRIAL [None]
  - OVERDOSE [None]
  - IRON DEFICIENCY [None]
  - PHLEBITIS [None]
  - GASTROINTESTINAL HAEMORRHAGE [None]
  - DUODENITIS [None]
  - HELICOBACTER GASTRITIS [None]
  - BLOOD UREA INCREASED [None]
  - AORTIC STENOSIS [None]
  - MITRAL VALVE DISEASE [None]
